FAERS Safety Report 7155533-4 (Version None)
Quarter: 2010Q4

REPORT INFORMATION
  Report Type: 
  Country: None (occurrence: None)
  Receive Date: 20101214
  Receipt Date: 20091113
  Transmission Date: 20110411
  Serious: No
  Sender: FDA-Public Use
  Company Number: US-AMGEN-KDL374549

PATIENT

DRUGS (15)
  1. ENBREL [Suspect]
     Indication: PRODUCT USED FOR UNKNOWN INDICATION
     Dosage: 50 MG, QWK
  2. VENLAFAXINE HCL [Concomitant]
  3. LORAZEPAM [Concomitant]
  4. RANITIDINE [Concomitant]
  5. FOLIC ACID [Concomitant]
  6. DIGOXIN [Concomitant]
  7. MELOXICAM [Concomitant]
  8. PREDNISONE [Concomitant]
  9. LUBIPROSTONE [Concomitant]
  10. ASPIRIN [Concomitant]
  11. CALCIUM [Concomitant]
  12. POTASSIUM CHLORIDE [Concomitant]
  13. HYDROCODONE [Concomitant]
  14. COLECALCIFEROL [Concomitant]
  15. METHOTREXATE [Concomitant]

REACTIONS (2)
  - SINUSITIS [None]
  - TOOTHACHE [None]
